APPROVED DRUG PRODUCT: IBUPROFEN
Active Ingredient: IBUPROFEN
Strength: 200MG
Dosage Form/Route: TABLET;ORAL
Application: A072249 | Product #001
Applicant: PH HEALTH LTD
Approved: Jan 10, 1989 | RLD: No | RS: No | Type: DISCN